FAERS Safety Report 15333891 (Version 2)
Quarter: 2018Q3

REPORT INFORMATION
  Report Type: Spontaneous
  Country: PT (occurrence: PT)
  Receive Date: 20180830
  Receipt Date: 20180831
  Transmission Date: 20181010
  Serious: Yes (Hospitalization, Other)
  Sender: FDA-Public Use
  Company Number: PT-TEVA-2018-PT-947802

PATIENT
  Age: 58 Year
  Sex: Male

DRUGS (1)
  1. CISPLATINA [Suspect]
     Active Substance: CISPLATIN
     Dosage: 4 CYCLES

REACTIONS (4)
  - Electrolyte imbalance [Recovered/Resolved]
  - Blood potassium decreased [Recovered/Resolved]
  - Blood magnesium decreased [Recovered/Resolved]
  - Renal tubular disorder [Recovered/Resolved]
